FAERS Safety Report 25483768 (Version 2)
Quarter: 2025Q3

REPORT INFORMATION
  Report Type: Spontaneous
  Country: US (occurrence: US)
  Receive Date: 20250626
  Receipt Date: 20250701
  Transmission Date: 20251021
  Serious: No
  Sender: ELI LILLY AND COMPANY
  Company Number: US-ELI_LILLY_AND_COMPANY-US202506022775

PATIENT
  Age: 79 Year
  Sex: Male

DRUGS (3)
  1. ZEPBOUND [Suspect]
     Active Substance: TIRZEPATIDE
     Indication: Weight control
     Route: 058
     Dates: start: 20250520
  2. ZEPBOUND [Suspect]
     Active Substance: TIRZEPATIDE
     Route: 058
  3. ZEPBOUND [Suspect]
     Active Substance: TIRZEPATIDE
     Route: 058

REACTIONS (3)
  - Hypophagia [Not Recovered/Not Resolved]
  - Nausea [Recovering/Resolving]
  - Asthenia [Not Recovered/Not Resolved]
